FAERS Safety Report 5532888-5 (Version None)
Quarter: 2007Q4

REPORT INFORMATION
  Report Type: 
  Country: None (occurrence: None)
  Receive Date: 20071129
  Receipt Date: 20071129
  Transmission Date: 20080405
  Serious: No
  Sender: FDA-Public Use
  Company Number: None

PATIENT
  Age: 20 Year
  Sex: Female
  Weight: 56.6996 kg

DRUGS (1)
  1. TOPAMAX [Suspect]
     Indication: MIGRAINE PROPHYLAXIS
     Dosage: 50MG TWICE DAILY PO
     Route: 048

REACTIONS (3)
  - ALOPECIA [None]
  - DYSFUNCTIONAL UTERINE BLEEDING [None]
  - METRORRHAGIA [None]
